FAERS Safety Report 6180900-5 (Version None)
Quarter: 2009Q2

REPORT INFORMATION
  Report Type: 
  Country: None (occurrence: None)
  Receive Date: 20090506
  Receipt Date: 20090423
  Transmission Date: 20091009
  Serious: Yes (Other)
  Sender: FDA-Public Use
  Company Number: CH-AMGEN-US328252

PATIENT
  Age: 16 Year
  Sex: Female
  Weight: 40 kg

DRUGS (2)
  1. ENBREL [Suspect]
     Indication: JUVENILE ARTHRITIS
     Route: 058
     Dates: start: 20060401
  2. DAFALGAN [Concomitant]
     Indication: PAIN
     Dosage: 500 MG AS NECESSARY
     Route: 048

REACTIONS (7)
  - ACNE PUSTULAR [None]
  - DERMATITIS [None]
  - ECZEMA [None]
  - HYPOACUSIS [None]
  - INFLAMMATION [None]
  - TINNITUS [None]
  - UVEITIS [None]
